FAERS Safety Report 18330105 (Version 6)
Quarter: 2020Q4

REPORT INFORMATION
  Report Type: Spontaneous
  Country: US (occurrence: US)
  Receive Date: 20200930
  Receipt Date: 20201204
  Transmission Date: 20210113
  Serious: Yes (Other)
  Sender: FDA-Public Use
  Company Number: US-SA-2020SA262911

PATIENT

DRUGS (2)
  1. LANTUS SOLOSTAR [Suspect]
     Active Substance: INSULIN GLARGINE
     Indication: TYPE 1 DIABETES MELLITUS
     Dosage: 20-30  IU AT NIGHT
     Route: 065
  2. LANTUS SOLOSTAR [Suspect]
     Active Substance: INSULIN GLARGINE
     Dosage: INCREASED DOSE TO 30  IU
     Route: 065

REACTIONS (8)
  - Blood glucose increased [Unknown]
  - Osteogenesis imperfecta [Unknown]
  - Fall [Unknown]
  - Drug ineffective [Unknown]
  - Liquid product physical issue [Unknown]
  - Ankle fracture [Unknown]
  - Gastrointestinal disorder [Unknown]
  - Glycosylated haemoglobin increased [Unknown]
